FAERS Safety Report 16595416 (Version 1)
Quarter: 2019Q3

REPORT INFORMATION
  Report Type: Spontaneous
  Country: US (occurrence: US)
  Receive Date: 20190605
  Receipt Date: 20190605
  Transmission Date: 20191004
  Serious: Yes (Hospitalization)
  Sender: FDA-Public Use
  Company Number: None

PATIENT
  Age: 74 Year
  Sex: Male
  Weight: 110.81 kg

DRUGS (1)
  1. PAROXETINE. [Suspect]
     Active Substance: PAROXETINE
     Indication: ANXIETY DISORDER
     Route: 048
     Dates: start: 20190412, end: 20190604

REACTIONS (3)
  - Dizziness [None]
  - Hypertension [None]
  - Angina pectoris [None]

NARRATIVE: CASE EVENT DATE: 20190603
